FAERS Safety Report 17022725 (Version 2)
Quarter: 2019Q4

REPORT INFORMATION
  Report Type: Spontaneous
  Country: US (occurrence: US)
  Receive Date: 20191112
  Receipt Date: 20191119
  Transmission Date: 20200122
  Serious: No
  Sender: FDA-Public Use
  Company Number: NVSC2019US026963

PATIENT
  Age: 29 Year
  Sex: Male

DRUGS (1)
  1. LISINOPRIL/HYDROCHLOROTHIAZIDE 10/12.5MG TABLETS [Suspect]
     Active Substance: HYDROCHLOROTHIAZIDE\LISINOPRIL
     Indication: PRODUCT USED FOR UNKNOWN INDICATION
     Dosage: 1 DF, QD
     Route: 065

REACTIONS (2)
  - Condition aggravated [Recovering/Resolving]
  - Postural orthostatic tachycardia syndrome [Recovering/Resolving]
